FAERS Safety Report 17588247 (Version 1)
Quarter: 2020Q1

REPORT INFORMATION
  Report Type: Spontaneous
  Country: US (occurrence: US)
  Receive Date: 20200326
  Receipt Date: 20200326
  Transmission Date: 20200409
  Serious: Yes (Other)
  Sender: FDA-Public Use
  Company Number: US-BAUSCH-BL-2020-008200

PATIENT
  Sex: Female

DRUGS (3)
  1. METRONIDAZOLE. [Suspect]
     Active Substance: METRONIDAZOLE
     Indication: VULVOVAGINITIS TRICHOMONAL
     Dosage: HIGH DOSE
     Route: 048
  2. METRONIDAZOLE VAGINAL GEL [Suspect]
     Active Substance: METRONIDAZOLE
     Indication: VULVOVAGINITIS TRICHOMONAL
     Route: 067
  3. TINIDAZOLE. [Suspect]
     Active Substance: TINIDAZOLE
     Indication: VULVOVAGINITIS TRICHOMONAL
     Route: 065

REACTIONS (3)
  - Drug ineffective [Unknown]
  - Neuropathy peripheral [Recovered/Resolved]
  - Drug resistance [Unknown]
